FAERS Safety Report 18613123 (Version 5)
Quarter: 2021Q1

REPORT INFORMATION
  Report Type: Spontaneous
  Country: PT (occurrence: PT)
  Receive Date: 20201214
  Receipt Date: 20210316
  Transmission Date: 20210419
  Serious: Yes (Life-Threatening, Hospitalization)
  Sender: FDA-Public Use
  Company Number: PT-GILEAD-2020-0508732

PATIENT
  Age: 82 Year
  Sex: Female
  Weight: 70 kg

DRUGS (12)
  1. VEKLURY [Suspect]
     Active Substance: REMDESIVIR
     Dosage: 100 MG, QD
     Route: 042
     Dates: start: 20201124, end: 20201124
  2. EPHEDRINE. [Concomitant]
     Active Substance: EPHEDRINE
     Route: 058
     Dates: start: 20201123, end: 20201123
  3. ENOXAPARIN SODIUM. [Concomitant]
     Active Substance: ENOXAPARIN SODIUM
     Route: 058
     Dates: start: 20201122
  4. VEKLURY [Suspect]
     Active Substance: REMDESIVIR
     Indication: COVID-19 PNEUMONIA
     Dosage: 200 MG D1
     Route: 042
     Dates: start: 20201123, end: 20201123
  5. CARBAMAZEPINE. [Concomitant]
     Active Substance: CARBAMAZEPINE
     Route: 048
     Dates: start: 20201121
  6. ALFENTANIL. [Concomitant]
     Active Substance: ALFENTANIL
     Route: 042
     Dates: start: 20201123
  7. ROCURONIUM BROMIDE. [Concomitant]
     Active Substance: ROCURONIUM BROMIDE
     Route: 042
     Dates: start: 20201123
  8. MIDAZOLAM. [Concomitant]
     Active Substance: MIDAZOLAM
     Route: 042
     Dates: start: 20201123
  9. ELECTROLYTES NOS [Concomitant]
     Active Substance: ELECTROLYTES NOS
     Route: 042
     Dates: start: 20201123
  10. PROPOFOL. [Concomitant]
     Active Substance: PROPOFOL
     Route: 042
     Dates: start: 20201123, end: 20201123
  11. NOREPINEPHRINE. [Concomitant]
     Active Substance: NOREPINEPHRINE
     Route: 042
     Dates: start: 20201123
  12. GLUCONATO CALCIO [Concomitant]
     Route: 042
     Dates: start: 20201123

REACTIONS (3)
  - Acid base balance abnormal [Recovered/Resolved]
  - Renal impairment [Recovered/Resolved]
  - Oliguria [Recovered/Resolved]

NARRATIVE: CASE EVENT DATE: 20201124
